FAERS Safety Report 6388983-4 (Version None)
Quarter: 2009Q4

REPORT INFORMATION
  Report Type: 
  Country: None (occurrence: None)
  Receive Date: 20091001
  Receipt Date: 20090922
  Transmission Date: 20100525
  Serious: Yes (Disabling)
  Sender: FDA-Public Use
  Company Number: ADR27702009

PATIENT
  Age: 56 Year
  Sex: Female

DRUGS (3)
  1. RAMIPRIL [Suspect]
     Indication: HYPERTENSION
     Dosage: 5 MG, ORAL
     Route: 048
     Dates: start: 20070501, end: 20070901
  2. NEBIVOLOL (100 MG) [Concomitant]
  3. THYROXINE (150 MCG) [Concomitant]

REACTIONS (3)
  - CHRONIC FATIGUE SYNDROME [None]
  - CONDITION AGGRAVATED [None]
  - OROPHARYNGEAL PAIN [None]
